FAERS Safety Report 5024426-0 (Version None)
Quarter: 2006Q2

REPORT INFORMATION
  Report Type: 
  Country: None (occurrence: None)
  Receive Date: 20060426
  Receipt Date: 20060301
  Transmission Date: 20061013
  Serious: Yes (Other)
  Sender: FDA-Public Use
  Company Number: 2006031644

PATIENT
  Age: 39 Year
  Sex: Female
  Weight: 176.9028 kg

DRUGS (14)
  1. LYRICA [Suspect]
     Indication: FIBROMYALGIA
     Dosage: 150 MG (75 MG, 2 IN 1 D)
     Dates: start: 20060221, end: 20060228
  2. ALBUTEROL [Concomitant]
  3. LASIX [Concomitant]
  4. TRAMADOL HCL [Concomitant]
  5. DEPO-PROVERA [Concomitant]
  6. REGLAN [Concomitant]
  7. QUININE SULFATE [Concomitant]
  8. FLEXERIL [Concomitant]
  9. PREVACID [Concomitant]
  10. ALLERX (CHLORPHENAMINE, HYOSCINE METHOBROMIDE PSEUDOEPHEDRINE) [Concomitant]
  11. ACTOS [Concomitant]
  12. LANTUS [Concomitant]
  13. HUMALOG [Concomitant]
  14. PROZAC [Concomitant]

REACTIONS (3)
  - DIARRHOEA [None]
  - NAUSEA [None]
  - VOMITING [None]
